FAERS Safety Report 9838736 (Version 1)
Quarter: 2013Q4

REPORT INFORMATION
  Report Type: Spontaneous
  Country: US (occurrence: None)
  Receive Date: 20131206
  Receipt Date: 20131206
  Transmission Date: 20140711
  Serious: Yes (Hospitalization)
  Sender: FDA-Public Use
  Company Number: 378873

PATIENT
  Age: 35 Year
  Sex: Male
  Weight: 129.3 kg

DRUGS (13)
  1. NOVOLOG FLEXPEN [Suspect]
     Indication: TYPE 2 DIABETES MELLITUS
     Dosage: 10 UNITS TID, SUBCUTANEOUS
     Route: 058
  2. HUMALOG [Concomitant]
  3. LANTUS (INSULIN GLARGINE) [Concomitant]
  4. ALDACTONE [Concomitant]
  5. ASPIRIN(ACETYLSALICYLIC ACID) [Concomitant]
  6. CARDURA(DOXAZOSIN MESILATE) [Concomitant]
  7. CATAPRES [Concomitant]
  8. LISINOPRIL(LISINOPRIL) [Concomitant]
  9. LOSARTAN(LOSARTAN) [Concomitant]
  10. PLAVIX(CLOPIDOGREL BISFULFATE) [Concomitant]
  11. MINOXIDIL(MINOXIDIL) [Concomitant]
  12. SYNTHROID(LEVOTHYROXINE SODIUM) [Concomitant]
  13. ZANTAC(RANITIDINE HYDROCHLORIDE) [Concomitant]

REACTIONS (2)
  - Hypersensitivity [None]
  - Blood glucose abnormal [None]
